FAERS Safety Report 6191709-0 (Version None)
Quarter: 2009Q2

REPORT INFORMATION
  Report Type: 
  Country: None (occurrence: None)
  Receive Date: 20090515
  Receipt Date: 20090506
  Transmission Date: 20091009
  Serious: Yes (Death, Hospitalization)
  Sender: FDA-Public Use
  Company Number: US-JNJFOC-20090205497

PATIENT
  Sex: Male
  Weight: 83.46 kg

DRUGS (2)
  1. INFLIXIMAB [Suspect]
     Dosage: 7 INFUSIONS ON UNKNOWN DATES
     Route: 042
  2. INFLIXIMAB [Suspect]
     Indication: PSORIASIS
     Route: 042

REACTIONS (3)
  - HEPATITIS C [None]
  - RENAL FAILURE ACUTE [None]
  - SEPSIS [None]
